FAERS Safety Report 4533964-6 (Version None)
Quarter: 2004Q4

REPORT INFORMATION
  Report Type: 
  Country: None (occurrence: None)
  Receive Date: 20041221
  Receipt Date: 20041221
  Transmission Date: 20050328
  Serious: Yes (Other)
  Sender: FDA-Public Use
  Company Number: None

PATIENT
  Age: 68 Year
  Sex: Male
  Weight: 119.3 kg

DRUGS (13)
  1. SIMVASTATIN [Suspect]
  2. ATENOLOL [Concomitant]
  3. ASPIRIN [Concomitant]
  4. DORZOLAMIDE HCL [Concomitant]
  5. GEMFIBROZIL [Concomitant]
  6. GLYBURIDE 5MG/METFORMIN HCL [Concomitant]
  7. BRIMONIDINE TARTRATE [Concomitant]
  8. HYPROMELLOSE [Concomitant]
  9. PILOCARPINE HCL [Concomitant]
  10. HYPROMELLOSE [Concomitant]
  11. TIMOLOL MALEATE [Concomitant]
  12. FOSINOPRIL [Concomitant]
  13. TRAVOPROST [Concomitant]

REACTIONS (1)
  - MYALGIA [None]
